FAERS Safety Report 15031074 (Version 2)
Quarter: 2018Q3

REPORT INFORMATION
  Report Type: Spontaneous
  Country: BR (occurrence: BR)
  Receive Date: 20180619
  Receipt Date: 20180716
  Transmission Date: 20181010
  Serious: Yes (Other)
  Sender: FDA-Public Use
  Company Number: BR-JNJFOC-20180618713

PATIENT
  Age: 36 Year
  Sex: Female

DRUGS (1)
  1. SIMPONI [Suspect]
     Active Substance: GOLIMUMAB
     Indication: RHEUMATOID ARTHRITIS
     Route: 058
     Dates: start: 20180412

REACTIONS (4)
  - Ageusia [Unknown]
  - Rheumatoid arthritis [Unknown]
  - Deafness bilateral [Unknown]
  - Anosmia [Unknown]

NARRATIVE: CASE EVENT DATE: 201804
